FAERS Safety Report 5636410-4 (Version None)
Quarter: 2008Q1

REPORT INFORMATION
  Report Type: 
  Country: None (occurrence: None)
  Receive Date: 20080225
  Receipt Date: 20071210
  Transmission Date: 20080703
  Serious: No
  Sender: FDA-Public Use
  Company Number: A0699106A

PATIENT
  Sex: Female

DRUGS (3)
  1. VERAMYST [Suspect]
     Indication: MULTIPLE ALLERGIES
     Route: 045
  2. FLONASE [Suspect]
     Indication: MULTIPLE ALLERGIES
     Route: 045
  3. FLUTICASONE PROPIONATE [Suspect]
     Indication: MULTIPLE ALLERGIES
     Route: 045

REACTIONS (2)
  - IRRITABILITY [None]
  - NASAL ULCER [None]
